FAERS Safety Report 7398015-7 (Version None)
Quarter: 2011Q2

REPORT INFORMATION
  Report Type: 
  Country: None (occurrence: None)
  Receive Date: 20110406
  Receipt Date: 20110404
  Transmission Date: 20111010
  Serious: Yes (Hospitalization)
  Sender: FDA-Public Use
  Company Number: US-ROXANE LABORATORIES, INC.-2011-RO-00452RO

PATIENT
  Sex: Female
  Weight: 94 kg

DRUGS (4)
  1. AMANTADINE HCL [Concomitant]
     Indication: FATIGUE
     Dates: end: 20100115
  2. BLOOD PRESSURE MEDICATION [Concomitant]
     Indication: HYPERTENSION
     Dates: end: 20100130
  3. PREDNISONE [Suspect]
  4. REBIF [Suspect]
     Indication: MULTIPLE SCLEROSIS
     Route: 058
     Dates: start: 20031122, end: 20100121

REACTIONS (12)
  - URINARY INCONTINENCE [None]
  - PULMONARY THROMBOSIS [None]
  - BLADDER CYST [None]
  - EPISTAXIS [None]
  - POLLAKIURIA [None]
  - THROMBOSIS [None]
  - DEPRESSION [None]
  - MULTIPLE SCLEROSIS RELAPSE [None]
  - ATRIAL FIBRILLATION [None]
  - OEDEMA PERIPHERAL [None]
  - DYSPEPSIA [None]
  - HEADACHE [None]
